FAERS Safety Report 13089796 (Version 6)
Quarter: 2019Q4

REPORT INFORMATION
  Report Type: Report from Study
  Country: JP (occurrence: JP)
  Receive Date: 20170105
  Receipt Date: 20191203
  Transmission Date: 20200122
  Serious: Yes (Other)
  Sender: FDA-Public Use
  Company Number: JP-OTSUKA-JP-2015-10127

PATIENT
  Age: 41 Year
  Sex: Male

DRUGS (27)
  1. TOLVAPTAN [Suspect]
     Active Substance: TOLVAPTAN
     Dosage: 30 MG, QD, IN THE MORNING
     Route: 048
     Dates: start: 20150304, end: 20150407
  2. TOLVAPTAN [Suspect]
     Active Substance: TOLVAPTAN
     Dosage: 90MG/DAY, DIVIDED INTO 2 DOSES
     Route: 048
     Dates: start: 20151209, end: 20160607
  3. TOLVAPTAN [Suspect]
     Active Substance: TOLVAPTAN
     Dosage: 120MG/DAY, DIVIDED INTO 2 DOSES
     Route: 048
     Dates: start: 20160608, end: 20180712
  4. TOLVAPTAN [Suspect]
     Active Substance: TOLVAPTAN
     Dosage: 45MG/DAY, DIVIDED TWO DOSES (EACH DOSE UNKNOWN)
     Route: 048
     Dates: start: 20180921, end: 20181018
  5. AMLODIPINE [Concomitant]
     Active Substance: AMLODIPINE BESYLATE
     Dosage: 10 MG, QD
     Route: 048
  6. TOLVAPTAN [Suspect]
     Active Substance: TOLVAPTAN
     Dosage: 22.5 MG, QD, IN THE MORNING
     Route: 048
     Dates: start: 20150107, end: 20150303
  7. TOLVAPTAN [Suspect]
     Active Substance: TOLVAPTAN
     Dosage: 45 MG, QD, IN THE MORNING
     Route: 048
     Dates: start: 20150408, end: 20150929
  8. TOLVAPTAN [Suspect]
     Active Substance: TOLVAPTAN
     Dosage: 60MG/DAY, DIVIDED TWO DOSES (EACH DOSE UNKNOWN)
     Route: 048
     Dates: start: 20180817, end: 20180920
  9. ALLOPURINOL. [Concomitant]
     Active Substance: ALLOPURINOL
     Dosage: 100 MG, QD
     Route: 048
     Dates: start: 201412
  10. URIADEC [Concomitant]
     Active Substance: TOPIROXOSTAT
     Indication: PRODUCT USED FOR UNKNOWN INDICATION
     Dosage: 80 MG, QD
     Route: 048
  11. TOLVAPTAN [Suspect]
     Active Substance: TOLVAPTAN
     Dosage: 22.5 MG, QD, IN THE MORNING
     Route: 048
     Dates: start: 20140819, end: 20140906
  12. TOLVAPTAN [Suspect]
     Active Substance: TOLVAPTAN
     Dosage: 7.5 MG, QD, IN THE EVENING
     Route: 048
     Dates: start: 20140819, end: 20140906
  13. TOLVAPTAN [Suspect]
     Active Substance: TOLVAPTAN
     Dosage: 15 MG, QD, IN THE EVENING
     Route: 048
     Dates: start: 20150304, end: 20150407
  14. TOLVAPTAN [Suspect]
     Active Substance: TOLVAPTAN
     Dosage: 75MG/DAY, DIVIDED INTO 2 DOSES
     Route: 048
     Dates: start: 20150930, end: 20151208
  15. AMLODIPINE [Concomitant]
     Active Substance: AMLODIPINE BESYLATE
     Indication: PRODUCT USED FOR UNKNOWN INDICATION
     Dosage: 5 MG, QD
     Route: 048
  16. FEBURIC [Concomitant]
     Active Substance: FEBUXOSTAT
     Indication: PRODUCT USED FOR UNKNOWN INDICATION
     Dosage: 20 MG, QD
     Route: 048
     Dates: end: 201412
  17. TOLVAPTAN [Suspect]
     Active Substance: TOLVAPTAN
     Indication: CONGENITAL CYSTIC KIDNEY DISEASE
     Dosage: 15 MG, QD
     Route: 048
     Dates: start: 20181116, end: 20190117
  18. LOSARTAN. [Concomitant]
     Active Substance: LOSARTAN
     Indication: PRODUCT USED FOR UNKNOWN INDICATION
     Dosage: 50 MG, QD
     Route: 048
  19. ALLOPURINOL. [Concomitant]
     Active Substance: ALLOPURINOL
     Indication: PRODUCT USED FOR UNKNOWN INDICATION
     Dosage: UNK
     Route: 048
     Dates: start: 201411
  20. TOLVAPTAN [Suspect]
     Active Substance: TOLVAPTAN
     Dosage: 30 MG, QD, IN THE MORNING
     Route: 048
     Dates: start: 20140907, end: 20141004
  21. TOLVAPTAN [Suspect]
     Active Substance: TOLVAPTAN
     Dosage: 15 MG, QD, IN THE EVENING
     Route: 048
     Dates: start: 20140907, end: 20141004
  22. TOLVAPTAN [Suspect]
     Active Substance: TOLVAPTAN
     Dosage: 45 MG, QD, IN THE MORNING
     Route: 048
     Dates: start: 20141005, end: 20150106
  23. TOLVAPTAN [Suspect]
     Active Substance: TOLVAPTAN
     Dosage: 15 MG, QD, IN THE EVENING
     Route: 048
     Dates: start: 20141005, end: 20150106
  24. TOLVAPTAN [Suspect]
     Active Substance: TOLVAPTAN
     Dosage: 7.5 MG, QD, IN THE EVENING
     Route: 048
     Dates: start: 20150107, end: 20150303
  25. TOLVAPTAN [Suspect]
     Active Substance: TOLVAPTAN
     Dosage: 90MG/DAY, DIVIDED TWO DOSES (EACH DOSE UNKNOWN)
     Route: 048
     Dates: start: 20180713, end: 20180816
  26. TOLVAPTAN [Suspect]
     Active Substance: TOLVAPTAN
     Dosage: 15 MG, QD, IN THE EVENING
     Route: 048
     Dates: start: 20150408, end: 20150929
  27. TOLVAPTAN [Suspect]
     Active Substance: TOLVAPTAN
     Dosage: 30 MG, QD
     Route: 048
     Dates: start: 20181019, end: 20181115

REACTIONS (4)
  - Glomerular filtration rate decreased [Unknown]
  - Inappropriate schedule of product administration [Unknown]
  - Hepatic function abnormal [Recovered/Resolved]
  - Hyperuricaemia [Recovering/Resolving]

NARRATIVE: CASE EVENT DATE: 20140821
